FAERS Safety Report 13867336 (Version 1)
Quarter: 2017Q3

REPORT INFORMATION
  Report Type: Spontaneous
  Country: US (occurrence: None)
  Receive Date: 20170814
  Receipt Date: 20170814
  Transmission Date: 20171127
  Serious: Yes (Life-Threatening)
  Sender: FDA-Public Use
  Company Number: None

PATIENT
  Age: 30 Year
  Sex: Female

DRUGS (1)
  1. STELARA [Suspect]
     Active Substance: USTEKINUMAB
     Indication: CROHN^S DISEASE
     Dosage: INDUCTION FOR CHRONS
     Route: 042
     Dates: start: 20170530

REACTIONS (4)
  - Fatigue [None]
  - Confusional state [None]
  - Amnesia [None]
  - Leukoencephalopathy [None]

NARRATIVE: CASE EVENT DATE: 20170530
